FAERS Safety Report 8594398 (Version 2)
Quarter: 2013Q2

REPORT INFORMATION
  Report Type: Spontaneous
  Country: GB (occurrence: GB)
  Receive Date: 20120604
  Receipt Date: 20130627
  Transmission Date: 20140414
  Serious: Yes (Other)
  Sender: FDA-Public Use
  Company Number: GB-PFIZER INC-2012130984

PATIENT
  Age: 46 Year
  Sex: Female
  Weight: 69 kg

DRUGS (4)
  1. AMLODIPINE BESILATE [Suspect]
     Dosage: UNK
     Route: 048
     Dates: start: 20120516
  2. ADCAL [Concomitant]
     Dosage: UNK
     Route: 065
     Dates: start: 20120123
  3. QVAR [Concomitant]
     Dosage: UNK
     Route: 065
     Dates: start: 20120123
  4. CO-CODAMOL [Concomitant]
     Dosage: UNK
     Route: 065
     Dates: start: 20120420, end: 20120518

REACTIONS (2)
  - Asthma [Recovering/Resolving]
  - Wrong drug administered [Recovering/Resolving]
